FAERS Safety Report 23935569 (Version 1)
Quarter: 2024Q2

REPORT INFORMATION
  Report Type: Report from Study
  Country: AR (occurrence: AR)
  Receive Date: 20240604
  Receipt Date: 20240604
  Transmission Date: 20240716
  Serious: Yes (Hospitalization)
  Sender: FDA-Public Use
  Company Number: AR-BEH-2024172467

PATIENT
  Age: 8 Year
  Sex: Female
  Weight: 37 kg

DRUGS (3)
  1. HIZENTRA [Suspect]
     Active Substance: HUMAN IMMUNOGLOBULIN G
     Indication: Secondary immunodeficiency
     Dosage: UNK
     Route: 058
     Dates: start: 20231212
  2. DIPYRONE [Concomitant]
     Active Substance: DIPYRONE
     Indication: Pain
  3. DIPYRONE [Concomitant]
     Active Substance: DIPYRONE
     Indication: Pain

REACTIONS (5)
  - Cellulitis [Recovered/Resolved]
  - Unevaluable event [Recovered/Resolved]
  - Vomiting [Not Recovered/Not Resolved]
  - Diarrhoea [Not Recovered/Not Resolved]
  - Dehydration [Not Recovered/Not Resolved]

NARRATIVE: CASE EVENT DATE: 20240422
